FAERS Safety Report 9491745 (Version 3)
Quarter: 2013Q4

REPORT INFORMATION
  Report Type: Spontaneous
  Country: FR (occurrence: FR)
  Receive Date: 20130830
  Receipt Date: 20131008
  Transmission Date: 20140711
  Serious: Yes (Death, Other)
  Sender: FDA-Public Use
  Company Number: FR-PFIZER INC-2013238518

PATIENT
  Age: 83 Year
  Sex: Female

DRUGS (3)
  1. CRIZOTINIB [Suspect]
     Indication: NEOPLASM MALIGNANT
     Dosage: 500 MG DAILY, IN 2 INTAKES
     Route: 048
     Dates: start: 20121123
  2. PROZAC [Interacting]
     Indication: BIPOLAR I DISORDER
  3. SERESTA [Concomitant]
     Indication: DEPRESSION
     Dosage: 10 MG, 1X/DAY
     Route: 048

REACTIONS (4)
  - Cachexia [Fatal]
  - Multi-organ failure [Fatal]
  - Depression [Fatal]
  - Drug interaction [Unknown]
